FAERS Safety Report 19237884 (Version 1)
Quarter: 2021Q2

REPORT INFORMATION
  Report Type: Spontaneous
  Country: US (occurrence: US)
  Receive Date: 20210510
  Receipt Date: 20210510
  Transmission Date: 20210717
  Serious: No
  Sender: FDA-Public Use
  Company Number: US-AMNEAL PHARMACEUTICALS-2021-AMRX-00772

PATIENT
  Sex: Male

DRUGS (1)
  1. DICLOFENAC SODIUM. [Suspect]
     Active Substance: DICLOFENAC SODIUM
     Indication: HYPOAESTHESIA
     Dosage: UNK
     Route: 061

REACTIONS (2)
  - Therapeutic product effect variable [Unknown]
  - Product use in unapproved indication [Unknown]
